FAERS Safety Report 7495386-8 (Version None)
Quarter: 2011Q2

REPORT INFORMATION
  Report Type: 
  Country: None (occurrence: None)
  Receive Date: 20110523
  Receipt Date: 20110511
  Transmission Date: 20111010
  Serious: Yes (Hospitalization)
  Sender: FDA-Public Use
  Company Number: CO-ELI_LILLY_AND_COMPANY-CO201104007009

PATIENT
  Age: 51 Year
  Sex: Female

DRUGS (5)
  1. METFORMIN [Concomitant]
     Indication: HYPOGLYCAEMIA
     Dosage: 850 MG, BID
     Route: 048
  2. OMEPRAZOLE [Concomitant]
     Dosage: UNK, QD
  3. PREDNISOLONE [Concomitant]
     Dosage: 45 MG, QD
  4. ASPIRIN [Concomitant]
     Dosage: 100 MG, QD
  5. BYETTA [Suspect]
     Indication: TYPE 2 DIABETES MELLITUS
     Dosage: 5 UG, BID
     Route: 058
     Dates: start: 20110414, end: 20110419

REACTIONS (5)
  - BLOOD GLUCOSE INCREASED [None]
  - MUCOSAL DRYNESS [None]
  - POLYURIA [None]
  - THIRST [None]
  - SENSORY DISTURBANCE [None]
